FAERS Safety Report 15202922 (Version 1)
Quarter: 2018Q3

REPORT INFORMATION
  Report Type: Report from Study
  Country: US (occurrence: US)
  Receive Date: 20180726
  Receipt Date: 20180726
  Transmission Date: 20181010
  Serious: Yes (Other)
  Sender: FDA-Public Use
  Company Number: US-MYLANLABS-2018M1053602

PATIENT
  Sex: Female
  Weight: 67 kg

DRUGS (1)
  1. GLATIRAMER ACETATE INJECTION [Suspect]
     Active Substance: GLATIRAMER ACETATE
     Indication: MULTIPLE SCLEROSIS
     Dosage: 40 MG, 3XW
     Route: 065
     Dates: end: 201805

REACTIONS (4)
  - Renal pain [Unknown]
  - Condition aggravated [Unknown]
  - Haemorrhage urinary tract [Unknown]
  - Renal embolism [Unknown]
